FAERS Safety Report 14945502 (Version 2)
Quarter: 2018Q2

REPORT INFORMATION
  Report Type: Spontaneous
  Country: FR (occurrence: FR)
  Receive Date: 20180529
  Receipt Date: 20180618
  Transmission Date: 20180711
  Serious: Yes (Hospitalization, Other)
  Sender: FDA-Public Use
  Company Number: FR-AUROBINDO-AUR-APL-2018-027501

PATIENT
  Age: 41 Year
  Sex: Female
  Weight: 45 kg

DRUGS (8)
  1. DOXORUBICIN [Suspect]
     Active Substance: DOXORUBICIN
     Indication: HODGKIN^S DISEASE
     Dosage: 35 MILLIGRAM/SQ. METER, CYCLICAL
     Route: 042
     Dates: start: 20171205, end: 20171205
  2. BLEOMYCINE                         /00183901/ [Suspect]
     Active Substance: BLEOMYCIN SULFATE
     Indication: HODGKIN^S DISEASE
     Dosage: 10 MILLIGRAM/SQ. METER, CYCLICAL
     Route: 042
     Dates: start: 20171212, end: 20171212
  3. PREDNISONE. [Suspect]
     Active Substance: PREDNISONE
     Indication: HODGKIN^S DISEASE
     Dosage: 40 MG/M2, QD
     Route: 048
     Dates: start: 20171205, end: 20171219
  4. PROCARBAZINE [Suspect]
     Active Substance: PROCARBAZINE
     Indication: HODGKIN^S DISEASE
     Dosage: 100 MG/M2, QD
     Route: 048
     Dates: start: 20171205, end: 20171211
  5. ETOPOSIDE. [Suspect]
     Active Substance: ETOPOSIDE
     Indication: HODGKIN^S DISEASE
     Dosage: 200 MILLIGRAM/SQ. METER, CYCLICAL
     Route: 042
     Dates: start: 20171205, end: 20171205
  6. CYCLOPHOSPHAMIDE. [Suspect]
     Active Substance: CYCLOPHOSPHAMIDE
     Indication: HODGKIN^S DISEASE
     Dosage: 1250 MILLIGRAM/SQ. METER, CYCLICAL
     Route: 042
     Dates: start: 20171205, end: 20171205
  7. CELLTOP [Suspect]
     Active Substance: ETOPOSIDE
     Indication: HODGKIN^S DISEASE
     Dosage: 200 MG/M2, QCY ; CYCLICAL
     Route: 042
     Dates: start: 20171205, end: 20171205
  8. VINCRISTINE SULFATE. [Suspect]
     Active Substance: VINCRISTINE SULFATE
     Indication: HODGKIN^S DISEASE
     Dosage: 1.4 MG/M2, QCY ; CYCLICAL
     Route: 042
     Dates: start: 20171212, end: 20171212

REACTIONS (4)
  - Aplasia [Recovered/Resolved]
  - Histiocytosis haematophagic [Recovering/Resolving]
  - Cytomegalovirus infection [Recovering/Resolving]
  - Lung disorder [Recovering/Resolving]

NARRATIVE: CASE EVENT DATE: 20171215
